FAERS Safety Report 18232088 (Version 1)
Quarter: 2020Q3

REPORT INFORMATION
  Report Type: Spontaneous
  Country: US (occurrence: US)
  Receive Date: 20200904
  Receipt Date: 20200904
  Transmission Date: 20201103
  Serious: Yes (Hospitalization, Disabling, Other)
  Sender: FDA-Public Use
  Company Number: None

PATIENT
  Age: 16 Year
  Sex: Female
  Weight: 76.95 kg

DRUGS (2)
  1. MINOCYCLINE 75 MG CAPSULE [Suspect]
     Active Substance: MINOCYCLINE HYDROCHLORIDE
     Indication: ACNE
     Dosage: ?          QUANTITY:1 CAPSULE(S);?
     Route: 048
     Dates: start: 20200801, end: 20200818
  2. TRETINOIN CREAM, USP 0.025% [Suspect]
     Active Substance: TRETINOIN
     Indication: ACNE
     Dosage: ?          QUANTITY:1 THIN LAYER;OTHER FREQUENCY:EVERY OTHER DAY;?
     Route: 061
     Dates: start: 20200801, end: 20200825

REACTIONS (2)
  - Idiopathic intracranial hypertension [None]
  - Impaired quality of life [None]

NARRATIVE: CASE EVENT DATE: 20200824
